FAERS Safety Report 20460793 (Version 1)
Quarter: 2022Q1

REPORT INFORMATION
  Report Type: Report from Study
  Country: IT (occurrence: IT)
  Receive Date: 20220211
  Receipt Date: 20220211
  Transmission Date: 20220423
  Serious: Yes (Hospitalization)
  Sender: FDA-Public Use
  Company Number: IT-PFIZER INC-202200242109

PATIENT

DRUGS (4)
  1. LORAZEPAM [Interacting]
     Active Substance: LORAZEPAM
     Indication: Bipolar disorder
     Dosage: 3 MG
  2. HALOPERIDOL [Interacting]
     Active Substance: HALOPERIDOL
     Indication: Bipolar disorder
     Dosage: 3 MG
  3. VALPROIC ACID [Interacting]
     Active Substance: VALPROIC ACID
     Indication: Bipolar disorder
     Dosage: 1000 MG
  4. BIPERIDEN [Interacting]
     Active Substance: BIPERIDEN
     Indication: Bipolar disorder
     Dosage: 4 MG

REACTIONS (2)
  - Drug interaction [Unknown]
  - Akathisia [Unknown]
